FAERS Safety Report 8319814-0 (Version None)
Quarter: 2012Q1

REPORT INFORMATION
  Report Type: 
  Country: None (occurrence: None)
  Receive Date: 20120315
  Receipt Date: 20110127
  Transmission Date: 20120608
  Serious: No
  Sender: FDA-Public Use
  Company Number: PHHY2011US07873

PATIENT
  Sex: Female

DRUGS (7)
  1. GILENYA [Suspect]
     Dosage: 0.5 MG, QD, ORAL
     Route: 048
     Dates: start: 20110126
  2. WELLBATRIN (BUPROPION HYDROCHLORIDE) [Concomitant]
  3. ZEGERID [Concomitant]
  4. BACLOFEN [Concomitant]
  5. PROVIGIL [Concomitant]
  6. NEURONTIN [Concomitant]
  7. ALEGRA [Concomitant]

REACTIONS (2)
  - HEART RATE DECREASED [None]
  - PARAESTHESIA [None]
